FAERS Safety Report 14095219 (Version 2)
Quarter: 2017Q4

REPORT INFORMATION
  Report Type: Spontaneous
  Country: CN (occurrence: CN)
  Receive Date: 20171016
  Receipt Date: 20171109
  Transmission Date: 20180321
  Serious: Yes (Other)
  Sender: FDA-Public Use
  Company Number: CN-BEH-2017084337

PATIENT
  Age: 31 Year
  Sex: Male
  Weight: 50 kg

DRUGS (2)
  1. ALBUREX [Suspect]
     Active Substance: ALBUMIN HUMAN
     Indication: HYPOALBUMINAEMIA
     Dosage: UNK
     Route: 042
     Dates: start: 20171009
  2. ALBUREX [Suspect]
     Active Substance: ALBUMIN HUMAN
     Indication: HEPATITIS
     Dosage: 40 ML, TOT
     Route: 042
     Dates: start: 20171010, end: 20171010

REACTIONS (4)
  - Transfusion reaction [Recovered/Resolved]
  - Pyrexia [Recovered/Resolved]
  - Acinetobacter test positive [Unknown]
  - Chills [Recovered/Resolved]

NARRATIVE: CASE EVENT DATE: 20171010
